FAERS Safety Report 7393952-1 (Version None)
Quarter: 2011Q2

REPORT INFORMATION
  Report Type: 
  Country: None (occurrence: None)
  Receive Date: 20110405
  Receipt Date: 20100409
  Transmission Date: 20111010
  Serious: No
  Sender: FDA-Public Use
  Company Number: US-AMGEN-KDL404705

PATIENT
  Sex: Female

DRUGS (4)
  1. NEULASTA [Suspect]
     Indication: CHEMOTHERAPY
     Dosage: 6 MG, UNK
     Dates: start: 20100401
  2. CYCLOPHOSPHAMIDE [Concomitant]
  3. ANTIHYPERTENSIVE MEDICATION NOS [Concomitant]
  4. DOCETAXEL [Concomitant]

REACTIONS (1)
  - BONE PAIN [None]
